FAERS Safety Report 5394631-2 (Version None)
Quarter: 2007Q3

REPORT INFORMATION
  Report Type: 
  Country: None (occurrence: None)
  Receive Date: 20070723
  Receipt Date: 20070717
  Transmission Date: 20080115
  Serious: Yes (Hospitalization)
  Sender: FDA-Public Use
  Company Number: JP-ELI_LILLY_AND_COMPANY-JP200706006443

PATIENT
  Age: 75 Year
  Sex: Male
  Weight: 66 kg

DRUGS (13)
  1. PEMETREXED [Suspect]
     Indication: PLEURAL MESOTHELIOMA MALIGNANT
     Dosage: 500 MG/M2, OTHER
     Route: 042
     Dates: start: 20070410, end: 20070522
  2. CISPLATIN [Suspect]
     Indication: PLEURAL MESOTHELIOMA MALIGNANT
     Dosage: 75 MG/M2, OTHER
     Route: 042
     Dates: start: 20070410, end: 20070522
  3. PANVITAN [Concomitant]
     Dosage: 0.5 MG, DAILY (1/D)
     Route: 048
     Dates: start: 20070402, end: 20070621
  4. METHYCOBAL [Concomitant]
     Dosage: 1 MG, DAILY (1/D)
     Route: 030
     Dates: start: 20070402
  5. METHYCOBAL [Concomitant]
     Dosage: 1 MG, DAILY (1/D)
     Route: 030
     Dates: start: 20070604
  6. SEROTONE [Concomitant]
     Indication: PROPHYLAXIS
     Dosage: 10 MG, DAILY (1/D)
     Route: 048
     Dates: start: 20070410, end: 20070524
  7. DECADRON [Concomitant]
     Indication: PROPHYLAXIS
     Dosage: 0.5 MG, DAILY (1/D)
     Route: 048
     Dates: start: 20070410, end: 20070524
  8. ROHYPNOL /SCH/ [Concomitant]
     Indication: PROPHYLAXIS
     Dosage: 1.5 MG, DAILY (1/D)
     Route: 048
     Dates: start: 20070410, end: 20070524
  9. NAUZELIN [Concomitant]
     Indication: PROPHYLAXIS
     Dosage: 30 MG, DAILY (1/D)
     Route: 048
     Dates: start: 20070410, end: 20070524
  10. SEPAMIT [Concomitant]
     Indication: PROPHYLAXIS
     Dosage: 10 MG, DAILY (1/D)
     Route: 048
  11. URSO 250 [Concomitant]
     Indication: PROPHYLAXIS
     Dosage: 300 MG, DAILY (1/D)
     Route: 048
  12. PURSENNID /SCH/ [Concomitant]
     Indication: PROPHYLAXIS
     Dosage: 24 MG, DAILY (1/D)
     Route: 048
     Dates: start: 20070509
  13. PROTECADIN [Concomitant]
     Indication: NAUSEA
     Dosage: 10 MG, DAILY (1/D)
     Route: 048
     Dates: start: 20070527, end: 20070602

REACTIONS (4)
  - BONE MARROW FAILURE [None]
  - HEPATIC FUNCTION ABNORMAL [None]
  - NEUTROPHIL COUNT DECREASED [None]
  - RENAL IMPAIRMENT [None]
